FAERS Safety Report 7434055-7 (Version None)
Quarter: 2011Q2

REPORT INFORMATION
  Report Type: 
  Country: None (occurrence: None)
  Receive Date: 20110425
  Receipt Date: 20110408
  Transmission Date: 20111010
  Serious: Yes (Death, Life-Threatening, Hospitalization, Other)
  Sender: FDA-Public Use
  Company Number: ES-CELGENEUS-144-21880-10121121

PATIENT
  Sex: Female

DRUGS (7)
  1. REVLIMID [Suspect]
     Indication: MULTIPLE MYELOMA
     Dosage: 25 MILLIGRAM
     Route: 048
     Dates: start: 20100602
  2. REVLIMID [Suspect]
     Dosage: 25 MILLIGRAM
     Route: 048
     Dates: start: 20101103, end: 20101124
  3. LMWH [Concomitant]
     Indication: PROPHYLAXIS
     Route: 065
  4. CLEXANE [Concomitant]
     Indication: THROMBOSIS PROPHYLAXIS
     Dosage: 40 MILLIGRAM
     Route: 058
     Dates: start: 20100602
  5. ARANESP [Concomitant]
     Dosage: 42.8571 MICROGRAM
     Route: 058
     Dates: start: 20100415
  6. DEXAMETHASONE [Suspect]
     Indication: MULTIPLE MYELOMA
     Dosage: 5.7143 MILLIGRAM
     Route: 048
     Dates: start: 20100602
  7. DEXAMETHASONE [Suspect]
     Dosage: 5.7143 MILLIGRAM
     Route: 048
     Dates: start: 20101103, end: 20101124

REACTIONS (4)
  - BRONCHITIS [None]
  - HYPOXIA [None]
  - ANAEMIA [None]
  - MULTIPLE MYELOMA [None]
